FAERS Safety Report 17448029 (Version 1)
Quarter: 2020Q1

REPORT INFORMATION
  Report Type: Report from Study
  Country: CO (occurrence: CO)
  Receive Date: 20200222
  Receipt Date: 20200222
  Transmission Date: 20200409
  Serious: Yes (Hospitalization, Other)
  Sender: FDA-Public Use
  Company Number: CO-ROCHE-2480904

PATIENT
  Sex: Male

DRUGS (2)
  1. CELLCEPT [Suspect]
     Active Substance: MYCOPHENOLATE MOFETIL\MYCOPHENOLATE MOFETIL HYDROCHLORIDE
     Indication: PRODUCT USED FOR UNKNOWN INDICATION
     Dosage: 2 GRAMS DAILY
     Route: 065
  2. SANDIMMUN [Concomitant]
     Active Substance: CYCLOSPORINE

REACTIONS (6)
  - Cholangitis [Unknown]
  - Hepatic cirrhosis [Unknown]
  - Biliary tract disorder [Unknown]
  - Hepatitis C [Unknown]
  - Neoplasm malignant [Unknown]
  - Blood pressure fluctuation [Unknown]
